FAERS Safety Report 7961939-3 (Version None)
Quarter: 2011Q4

REPORT INFORMATION
  Report Type: 
  Country: None (occurrence: None)
  Receive Date: 20111207
  Receipt Date: 20111201
  Transmission Date: 20120403
  Serious: Yes (Hospitalization, Other)
  Sender: FDA-Public Use
  Company Number: FR-ELI_LILLY_AND_COMPANY-FR201112000104

PATIENT
  Sex: Female
  Weight: 74 kg

DRUGS (10)
  1. GEMZAR [Suspect]
     Indication: ADENOCARCINOMA PANCREAS
     Dosage: UNK, UNKNOWN
     Route: 042
     Dates: start: 20030701, end: 20040301
  2. LEUCOVORIN CALCIUM [Concomitant]
     Dosage: UNK, UNKNOWN
  3. LERCANIDIPINE [Concomitant]
     Dosage: 10 MG, QD
  4. XELODA [Concomitant]
     Dosage: UNK, UNKNOWN
  5. GEMZAR [Suspect]
     Dosage: UNK, UNKNOWN
     Route: 042
     Dates: start: 20110201, end: 20110428
  6. GEMZAR [Suspect]
     Dosage: UNK, UNKNOWN
     Route: 042
     Dates: start: 20110512, end: 20110925
  7. OXALIPLATIN [Concomitant]
     Dosage: UNK, UNKNOWN
  8. GEMZAR [Suspect]
     Dosage: UNK, UNKNOWN
     Route: 042
     Dates: start: 20101216
  9. FLUOROURACIL [Concomitant]
     Dosage: UNK, UNKNOWN
  10. IRINOTECAN HCL [Concomitant]
     Dosage: UNK, UNKNOWN

REACTIONS (12)
  - RENAL FAILURE [None]
  - PROTEINURIA [None]
  - WEIGHT INCREASED [None]
  - THROMBOTIC MICROANGIOPATHY [None]
  - THROMBOCYTOPENIA [None]
  - RED BLOOD CELL SCHISTOCYTES PRESENT [None]
  - HAEMORRHOIDAL HAEMORRHAGE [None]
  - ANAEMIA [None]
  - SUBCUTANEOUS HAEMATOMA [None]
  - HYPERTENSION [None]
  - BLOOD LACTATE DEHYDROGENASE INCREASED [None]
  - DYSPNOEA [None]
